FAERS Safety Report 6541974-2 (Version None)
Quarter: 2010Q1

REPORT INFORMATION
  Report Type: 
  Country: None (occurrence: None)
  Receive Date: 20100119
  Receipt Date: 20100112
  Transmission Date: 20100710
  Serious: Yes (Hospitalization, Other)
  Sender: FDA-Public Use
  Company Number: US-BIOGENIDEC-2009BI035586

PATIENT
  Sex: Male

DRUGS (6)
  1. AVONEX [Suspect]
     Indication: MULTIPLE SCLEROSIS
     Route: 030
     Dates: start: 19960101
  2. AVONEX [Suspect]
     Route: 030
     Dates: start: 19970101, end: 20040101
  3. AVONEX [Suspect]
     Route: 030
     Dates: start: 20081101, end: 20090401
  4. AVONEX [Suspect]
     Route: 030
     Dates: start: 20090401, end: 20091001
  5. AVONEX [Suspect]
     Route: 030
     Dates: start: 20091001
  6. REBIF [Concomitant]
     Indication: MULTIPLE SCLEROSIS

REACTIONS (9)
  - CERVICAL VERTEBRAL FRACTURE [None]
  - INFLUENZA LIKE ILLNESS [None]
  - INJURY [None]
  - MULTIPLE SCLEROSIS [None]
  - MULTIPLE SCLEROSIS RELAPSE [None]
  - MUSCULAR WEAKNESS [None]
  - PARALYSIS [None]
  - ROAD TRAFFIC ACCIDENT [None]
  - SPINAL FRACTURE [None]
